FAERS Safety Report 7490375-1 (Version None)
Quarter: 2011Q2

REPORT INFORMATION
  Report Type: 
  Country: None (occurrence: None)
  Receive Date: 20110519
  Receipt Date: 20110509
  Transmission Date: 20111010
  Serious: Yes (Other)
  Sender: FDA-Public Use
  Company Number: US-BAYER-2011-016128

PATIENT
  Age: 28 Year
  Sex: Female
  Weight: 53.061 kg

DRUGS (1)
  1. MIRENA [Suspect]
     Indication: CONTRACEPTION
     Dosage: UNK
     Route: 015
     Dates: start: 20071004, end: 20110127

REACTIONS (5)
  - UNEVALUABLE EVENT [None]
  - PREGNANCY WITH CONTRACEPTIVE DEVICE [None]
  - MENORRHAGIA [None]
  - ABORTION SPONTANEOUS [None]
  - DYSMENORRHOEA [None]
